FAERS Safety Report 8447905 (Version 5)
Quarter: 2020Q4

REPORT INFORMATION
  Report Type: Spontaneous
  Country: US (occurrence: US)
  Receive Date: 20120308
  Receipt Date: 20201217
  Transmission Date: 20210114
  Serious: Yes (Hospitalization, Other)
  Sender: FDA-Public Use
  Company Number: US-009507513-1202USA04196

PATIENT
  Sex: Female
  Weight: 55.79 kg

DRUGS (12)
  1. FOSAMAX [Suspect]
     Active Substance: ALENDRONATE SODIUM
     Dosage: 70 MG, QW
     Route: 048
  2. FOSAMAX [Suspect]
     Active Substance: ALENDRONATE SODIUM
     Indication: OSTEOPENIA
  3. OMEGA-3 MARINE TRIGLYCERIDES [Concomitant]
     Active Substance: OMEGA-3-ACID ETHYL ESTERS
     Dosage: 1000 MG, QD
     Dates: start: 1992
  4. FOSAMAX [Suspect]
     Active Substance: ALENDRONATE SODIUM
     Indication: OSTEOPOROSIS
     Dosage: 35 MG, QW
     Route: 048
     Dates: start: 20080229, end: 20100224
  5. CHANTIX [Concomitant]
     Active Substance: VARENICLINE TARTRATE
     Indication: EX-TOBACCO USER
     Dosage: 1 MG, BID
     Route: 048
     Dates: start: 20070705, end: 20071005
  6. FOSAMAX [Suspect]
     Active Substance: ALENDRONATE SODIUM
     Indication: OSTEOPENIA
     Dosage: 35 MG, QW
     Route: 048
     Dates: start: 20040907, end: 20100228
  7. CALTRATE WITH VITAMIN D [Concomitant]
     Active Substance: CALCIUM CARBONATE\CHOLECALCIFEROL
     Dosage: 2 DF, QD
     Dates: start: 1992
  8. FOSAMAX [Suspect]
     Active Substance: ALENDRONATE SODIUM
     Indication: OSTEOPOROSIS
     Dosage: UNK
     Dates: start: 200201, end: 201003
  9. CYANOCOBALAMIN. [Concomitant]
     Active Substance: CYANOCOBALAMIN
     Dosage: 1 DF, QD
     Dates: start: 1992
  10. ASCORBIC ACID. [Concomitant]
     Active Substance: ASCORBIC ACID
     Dosage: 2 DF, QD
     Dates: start: 1992
  11. NICOTINE. [Concomitant]
     Active Substance: NICOTINE
     Indication: EX-TOBACCO USER
  12. CALCIUM (UNSPECIFIED) (+) VITAMIN D (UNSPECIFIED) [Concomitant]
     Active Substance: CALCIUM CARBONATE\VITAMIN D
     Indication: OSTEOPENIA
     Dosage: 500/200

REACTIONS (52)
  - Muscular weakness [Unknown]
  - Hyperlipidaemia [Unknown]
  - Joint dislocation [Unknown]
  - Synovial cyst [Unknown]
  - Fatigue [Unknown]
  - Myelodysplastic syndrome [Unknown]
  - Hypothyroidism [Recovered/Resolved with Sequelae]
  - Lumbar radiculopathy [Unknown]
  - Spinal osteoarthritis [Unknown]
  - Yawning [Unknown]
  - Ligament rupture [Unknown]
  - Upper respiratory tract infection [Recovered/Resolved]
  - Hyperglycaemia [Unknown]
  - Arthritis [Unknown]
  - Adverse event [Unknown]
  - Pain in extremity [Unknown]
  - Optic ischaemic neuropathy [Unknown]
  - Scoliosis [Unknown]
  - Depression [Unknown]
  - Meniscus injury [Recovered/Resolved]
  - Anaemia postoperative [Unknown]
  - Low turnover osteopathy [Unknown]
  - Anxiety [Unknown]
  - Stress [Unknown]
  - Muscle strain [Unknown]
  - Osteoarthritis [Recovering/Resolving]
  - Diarrhoea [Unknown]
  - Diarrhoea [Unknown]
  - Anaemia [Unknown]
  - Osteoarthritis [Recovering/Resolving]
  - Macrocytosis [Unknown]
  - Herpes simplex [Unknown]
  - Large intestine polyp [Unknown]
  - Vitamin D deficiency [Unknown]
  - Oedema peripheral [Unknown]
  - Cellulitis [Unknown]
  - Intervertebral disc displacement [Unknown]
  - Lactose intolerance [Unknown]
  - Osteoarthritis [Recovering/Resolving]
  - Pectus carinatum [Unknown]
  - Femur fracture [Recovered/Resolved]
  - Leukopenia [Unknown]
  - Hip fracture [Unknown]
  - Large intestine polyp [Unknown]
  - Fructose intolerance [Unknown]
  - Onychomycosis [Unknown]
  - Weight decreased [Unknown]
  - Haemorrhoids [Unknown]
  - Arthritis [Unknown]
  - Anaemia of chronic disease [Unknown]
  - Diarrhoea [Not Recovered/Not Resolved]
  - Meniscus injury [Unknown]

NARRATIVE: CASE EVENT DATE: 2002
